FAERS Safety Report 12541236 (Version 1)
Quarter: 2016Q3

REPORT INFORMATION
  Report Type: Report from Study
  Country: SE (occurrence: SE)
  Receive Date: 20160708
  Receipt Date: 20160708
  Transmission Date: 20161109
  Serious: Yes (Other)
  Sender: FDA-Public Use
  Company Number: SE-KADMON PHARMACEUTICALS, LLC-KAD201607-002471

PATIENT
  Age: 56 Year
  Sex: Female
  Weight: 85 kg

DRUGS (5)
  1. ALPRAZOLAM 1 MG [Concomitant]
     Indication: ANXIETY
  2. RIBAVIRIN 200 MG [Suspect]
     Active Substance: RIBAVIRIN
     Indication: HEPATITIS C
     Dosage: FILM-COATED TABLET; 400 MG, 1 IN 1 DAY (IN THE MORNING) AND 600 MG, 1 IN 1 DAY (IN THE EVENING)
     Route: 048
     Dates: start: 20160428
  3. DAKLINZA [Concomitant]
     Active Substance: DACLATASVIR
     Indication: HEPATITIS C
  4. SOVALDI [Concomitant]
     Active Substance: SOFOSBUVIR
     Indication: HEPATITIS C
  5. FLUPENTIXOL 0.5 MG [Concomitant]

REACTIONS (1)
  - Visual impairment [Unknown]

NARRATIVE: CASE EVENT DATE: 20160528
